FAERS Safety Report 19272955 (Version 1)
Quarter: 2021Q2

REPORT INFORMATION
  Report Type: Spontaneous
  Country: US (occurrence: US)
  Receive Date: 20210519
  Receipt Date: 20210519
  Transmission Date: 20210717
  Serious: Yes (Hospitalization)
  Sender: FDA-Public Use
  Company Number: US-TEVA-2021-US-1912438

PATIENT
  Age: 62 Year
  Sex: Male

DRUGS (3)
  1. ADENOSINE. [Interacting]
     Active Substance: ADENOSINE
     Dosage: 12MG ADMINISTERED AS RAPID INTRAVENOUS PUSH
     Route: 040
  2. ADENOSINE. [Suspect]
     Active Substance: ADENOSINE
     Indication: SUPRAVENTRICULAR TACHYCARDIA
     Dosage: 6MG ADMINISTERED AS RAPID INTRAVENOUS PUSH
     Route: 040
  3. THEOPHYLLINE [Interacting]
     Active Substance: THEOPHYLLINE ANHYDROUS
     Indication: CHRONIC OBSTRUCTIVE PULMONARY DISEASE
     Dosage: CHRONIC TREATMENT
     Route: 065

REACTIONS (6)
  - Supraventricular tachycardia [Recovered/Resolved]
  - Metabolic acidosis [Recovering/Resolving]
  - Blood glucose increased [Recovering/Resolving]
  - Hypotension [Recovered/Resolved]
  - Treatment failure [Unknown]
  - Drug interaction [Unknown]
